FAERS Safety Report 8499902-9 (Version None)
Quarter: 2012Q3

REPORT INFORMATION
  Report Type: 
  Country: None (occurrence: None)
  Receive Date: 20120710
  Receipt Date: 20120702
  Transmission Date: 20120928
  Serious: Yes (Hospitalization)
  Sender: FDA-Public Use
  Company Number: US-ASTRAZENECA-2011SE32236

PATIENT
  Age: 49 Year
  Sex: Female

DRUGS (39)
  1. HYDROCODONE [Concomitant]
     Indication: PAIN
     Dosage: AS NEEDED
  2. AMITRIPTYLINE HCL [Concomitant]
     Dates: start: 20090914
  3. SIMVASTATIN [Concomitant]
     Dosage: 10/20MG ONE TABLET PO DAILY
     Route: 048
     Dates: start: 20100211
  4. VYTORIN [Concomitant]
     Dosage: 10/20 MG
     Dates: start: 20090914
  5. BUTALBITAL [Concomitant]
     Dosage: PRN
     Dates: start: 20090914
  6. NEXIUM [Suspect]
     Route: 048
     Dates: start: 20091019
  7. ZOLPIDEM [Concomitant]
     Dates: start: 20100309
  8. METOPROLOL TARTRATE [Concomitant]
     Route: 048
     Dates: start: 20090914
  9. NEURONTIN [Concomitant]
     Route: 048
     Dates: start: 20100211
  10. CRESTOR [Concomitant]
     Indication: BLOOD CHOLESTEROL INCREASED
  11. HYDROCHLOROTHIAZIDE [Concomitant]
     Route: 048
     Dates: start: 20100211
  12. PREVACID [Concomitant]
     Dates: start: 20090914
  13. NEXIUM [Suspect]
     Route: 048
     Dates: start: 20100211
  14. HYDROCODONE [Concomitant]
     Dates: start: 20100323
  15. ZOLPIDEM [Concomitant]
     Indication: SLEEP DISORDER
  16. EXFORGE [Concomitant]
     Dosage: 5/320 ONE TAB PO DAILY
     Route: 048
     Dates: start: 20100211
  17. METOPROLOL TARTRATE [Concomitant]
     Route: 048
     Dates: start: 20100325
  18. NITROGLYCERIN [Concomitant]
     Dosage: 0.2MG PER HOUR PATCHES
     Dates: start: 20091001
  19. NEXIUM [Suspect]
     Indication: GASTROOESOPHAGEAL REFLUX DISEASE
     Route: 048
     Dates: start: 20010101, end: 20110101
  20. NEXIUM [Suspect]
     Route: 048
     Dates: start: 20100226
  21. HYDROCHLOROTHIAZIDE [Concomitant]
     Indication: HYPERTENSION
  22. HYDROCODONE [Concomitant]
     Dates: start: 20090914
  23. HYDROCO/ACETAMIN [Concomitant]
     Indication: BACK PAIN
     Dosage: 10MG/325MG TO BE TAKEN EVERY 12 HOURS
     Route: 048
     Dates: start: 20091006
  24. HYDROCO/ACETAMIN [Concomitant]
     Dosage: ONE OR TWO TAB PO DAILY
     Route: 048
     Dates: start: 20100211
  25. HYDROCO/ACETAMIN [Concomitant]
     Dosage: 10-325 MG
     Route: 048
     Dates: start: 20100325
  26. NEURONTIN [Concomitant]
     Route: 048
     Dates: start: 20091002
  27. CYCLOBENZAPRINE [Concomitant]
     Route: 048
     Dates: start: 20090930
  28. CYCLOBENZAPRINE [Concomitant]
     Route: 065
     Dates: start: 20090914
  29. DIOVAN [Concomitant]
     Dates: start: 20090914
  30. OMEPRAZOLE CR [Concomitant]
     Dates: start: 20010101, end: 20110101
  31. PHENERGAN HCL [Concomitant]
     Route: 048
     Dates: start: 20100211
  32. NITRIPTYLINE [Concomitant]
     Dates: start: 20100211
  33. NEXIUM [Suspect]
     Dosage: EVERY DAY
     Route: 048
     Dates: start: 20030101
  34. HYDROCODONE [Concomitant]
     Dosage: 10/325 MG ONE TA PO DAILY
     Route: 048
     Dates: start: 20100211
  35. AMITRIPTYLINE HCL [Concomitant]
     Indication: DEPRESSION
  36. METOPROLOL TARTRATE [Concomitant]
     Route: 048
     Dates: start: 20100211
  37. METHOCARBAMOL [Concomitant]
     Route: 048
     Dates: start: 20100211
  38. PREVACID [Concomitant]
     Route: 048
     Dates: start: 20091017
  39. GABAPENTIN [Concomitant]
     Dates: start: 20090914

REACTIONS (7)
  - WALKING AID USER [None]
  - OSTEOPOROSIS [None]
  - ANKLE FRACTURE [None]
  - ARTHRITIS [None]
  - GLAUCOMA [None]
  - SCIATIC NERVE INJURY [None]
  - DEPRESSION [None]
